FAERS Safety Report 25846100 (Version 1)
Quarter: 2025Q3

REPORT INFORMATION
  Report Type: Spontaneous
  Country: EU (occurrence: EU)
  Receive Date: 20250925
  Receipt Date: 20250925
  Transmission Date: 20251021
  Serious: Yes (Other)
  Sender: AUROBINDO
  Company Number: EU-SEMPA-2024-000096

PATIENT
  Age: 78 Year
  Sex: Female

DRUGS (5)
  1. AMLODIPINE [Suspect]
     Active Substance: AMLODIPINE BESYLATE
     Indication: Hypertension
     Dosage: 5 MILLIGRAM, ONCE A DAY
     Route: 048
     Dates: start: 20231217, end: 20231218
  2. WARFARIN [Concomitant]
     Active Substance: WARFARIN
     Indication: Product used for unknown indication
     Route: 065
     Dates: start: 2001
  3. ATENOLOL [Concomitant]
     Active Substance: ATENOLOL
     Indication: Product used for unknown indication
     Route: 065
     Dates: start: 2001
  4. ROSUVASTATIN [Concomitant]
     Active Substance: ROSUVASTATIN
     Indication: Product used for unknown indication
     Route: 065
     Dates: start: 202311
  5. LEVOTHYROXINE SODIUM [Concomitant]
     Active Substance: LEVOTHYROXINE SODIUM
     Indication: Product used for unknown indication
     Route: 065
     Dates: start: 1990

REACTIONS (11)
  - Nerve compression [Recovered/Resolved]
  - Peripheral swelling [Recovered/Resolved]
  - Generalised oedema [Recovered/Resolved]
  - Syncope [Recovered/Resolved]
  - Fatigue [Unknown]
  - Pain [Unknown]
  - Sleep attacks [Unknown]
  - Pruritus [Unknown]
  - Swelling [Unknown]
  - Dizziness [Unknown]
  - Sciatica [Unknown]

NARRATIVE: CASE EVENT DATE: 20231218
